FAERS Safety Report 9863708 (Version 2)
Quarter: 2014Q1

REPORT INFORMATION
  Report Type: Report from Study
  Country: DK (occurrence: DK)
  Receive Date: 20140203
  Receipt Date: 20140224
  Transmission Date: 20141002
  Serious: Yes (Death)
  Sender: FDA-Public Use
  Company Number: DK-009507513-1401DNK012673

PATIENT
  Sex: 0

DRUGS (3)
  1. TEMOZOLOMIDE [Suspect]
     Indication: GLIOBLASTOMA MULTIFORME
     Dosage: 200 MG/M2, QD, BEFORE AND AFTER RADIOTHERAPY
  2. TEMOZOLOMIDE [Suspect]
     Dosage: 75 MG/M2, QD, DURING RADIOTHERAPY
  3. BEVACIZUMAB [Suspect]
     Dosage: 10 MG/KG, UNK

REACTIONS (1)
  - Febrile neutropenia [Fatal]
